FAERS Safety Report 12284901 (Version 1)
Quarter: 2016Q2

REPORT INFORMATION
  Report Type: Spontaneous
  Country: BR (occurrence: BR)
  Receive Date: 20160420
  Receipt Date: 20160420
  Transmission Date: 20160815
  Serious: Yes (Other)
  Sender: FDA-Public Use
  Company Number: BR-ACCORD-039682

PATIENT
  Age: 43 Year
  Sex: Female
  Weight: 61.7 kg

DRUGS (8)
  1. DEXAMETHASONE. [Concomitant]
     Active Substance: DEXAMETHASONE
     Indication: PROPHYLAXIS
     Dosage: S.F.100ML+ DEXAMETHASONE
     Route: 042
     Dates: start: 20160201, end: 20160201
  2. DOXORUBICIN [Concomitant]
     Active Substance: DOXORUBICIN
     Dosage: 4AC REGIMEN
  3. DIPHENHYDRAMINE. [Concomitant]
     Active Substance: DIPHENHYDRAMINE
     Indication: PROPHYLAXIS
     Dosage: S.F. 100ML+ DIPHENHYDRAMINE, 1 AMPOULE
     Route: 042
     Dates: start: 20160201, end: 20160201
  4. SALINE SOLUTION [Concomitant]
     Active Substance: SODIUM CHLORIDE
     Indication: PROPHYLAXIS
     Dosage: S.F. 0.9% 25ML, 1 BAG
     Route: 042
     Dates: start: 20160201, end: 20160201
  5. RANITIDINE. [Concomitant]
     Active Substance: RANITIDINE
     Indication: PROPHYLAXIS
     Dosage: 50MG/2ML, 1 AMPOULE
     Route: 042
     Dates: start: 20160201, end: 20160201
  6. CYCLOPHOSPHAMIDE/CYCLOPHOSPHAMIDE MONOHYDRATE [Concomitant]
     Dosage: 4AC REGIMEN
  7. PACLITAXEL/PACLITAXEL LIPOSOME [Suspect]
     Active Substance: PACLITAXEL
     Indication: BREAST CANCER FEMALE
     Dosage: 175MG / M2 EVERY 21 DAYS
     Route: 042
     Dates: start: 20160107
  8. NAUSEDRON [Concomitant]
     Active Substance: ONDANSETRON HYDROCHLORIDE
     Indication: PROPHYLAXIS
     Route: 042
     Dates: start: 20160201, end: 20160201

REACTIONS (5)
  - Hyperaemia [Recovered/Resolved]
  - Abdominal pain [Recovered/Resolved]
  - Vision blurred [Recovered/Resolved]
  - Respiratory distress [Recovered/Resolved]
  - Malaise [Recovered/Resolved]

NARRATIVE: CASE EVENT DATE: 20160107
